FAERS Safety Report 4577308-2 (Version None)
Quarter: 2005Q1

REPORT INFORMATION
  Report Type: 
  Country: None (occurrence: None)
  Receive Date: 20050210
  Receipt Date: 20050201
  Transmission Date: 20050727
  Serious: Yes (Disabling)
  Sender: FDA-Public Use
  Company Number: ZA-BRISTOL-MYERS SQUIBB COMPANY-12854782

PATIENT
  Age: 38 Year
  Sex: Male

DRUGS (5)
  1. EFAVIRENZ CAPS [Suspect]
     Indication: HIV INFECTION
     Route: 048
     Dates: start: 20041005, end: 20041022
  2. RIFAFOUR [Concomitant]
     Dates: start: 20040401
  3. LAMIVUDINE [Concomitant]
     Dates: start: 20041005
  4. STAVUDINE [Concomitant]
     Dates: start: 20041005
  5. SULFAMETHOXAZOLE + TRIMETHOPRIM [Concomitant]
     Dates: start: 20040702

REACTIONS (1)
  - CEREBELLAR ATAXIA [None]
